FAERS Safety Report 18688465 (Version 1)
Quarter: 2020Q4

REPORT INFORMATION
  Report Type: Spontaneous
  Country: US (occurrence: US)
  Receive Date: 20201231
  Receipt Date: 20201231
  Transmission Date: 20210114
  Serious: No
  Sender: FDA-Public Use
  Company Number: US-KYOWAKIRIN-2020BKK022879

PATIENT

DRUGS (1)
  1. NOURIANZ [Suspect]
     Active Substance: ISTRADEFYLLINE
     Indication: PARKINSON^S DISEASE
     Dosage: 1 TO 2 TABLETS BY MOUTH DAILY
     Route: 048
     Dates: start: 20201204, end: 20201215

REACTIONS (6)
  - Conversion disorder [Unknown]
  - Off label use [Recovered/Resolved]
  - Freezing phenomenon [Unknown]
  - Dyskinesia [Unknown]
  - Nausea [Unknown]
  - Mania [Unknown]

NARRATIVE: CASE EVENT DATE: 202012
